FAERS Safety Report 18956646 (Version 1)
Quarter: 2021Q1

REPORT INFORMATION
  Report Type: Spontaneous
  Country: US (occurrence: US)
  Receive Date: 20210302
  Receipt Date: 20210302
  Transmission Date: 20210420
  Serious: Yes (Hospitalization)
  Sender: FDA-Public Use
  Company Number: US-SA-2021SA064930

PATIENT
  Age: 79 Year
  Sex: Male

DRUGS (1)
  1. RENVELA [Suspect]
     Active Substance: SEVELAMER CARBONATE
     Indication: PROPHYLAXIS
     Dosage: 800 MG, TID (WITH MEALS)
     Route: 048

REACTIONS (2)
  - Hospitalisation [Unknown]
  - Gastrostomy [Unknown]
